FAERS Safety Report 24232563 (Version 1)
Quarter: 2024Q3

REPORT INFORMATION
  Report Type: Spontaneous
  Country: US (occurrence: None)
  Receive Date: 20240820
  Receipt Date: 20240820
  Transmission Date: 20241017
  Serious: Yes (unspecified)
  Sender: Public
  Company Number: None

PATIENT
  Age: 71 Year
  Sex: Female
  Weight: 76.5 kg

DRUGS (17)
  1. ANASTROZOLE [Suspect]
     Active Substance: ANASTROZOLE
     Indication: Breast cancer
     Dosage: 1 TABLET DAILY ORAL ?
     Route: 048
     Dates: start: 20240611, end: 20240629
  2. C pap [Concomitant]
  3. AMLODIPINE BESYLATE [Concomitant]
     Active Substance: AMLODIPINE BESYLATE
  4. RESTASIS [Concomitant]
     Active Substance: CYCLOSPORINE
  5. AZELASTINE [Concomitant]
     Active Substance: AZELASTINE\AZELASTINE HYDROCHLORIDE
  6. CONTRAVE [Concomitant]
     Active Substance: BUPROPION HYDROCHLORIDE\NALTREXONE HYDROCHLORIDE
  7. VITAMIN B COMPLEX [Concomitant]
     Active Substance: CYANOCOBALAMIN\DEXPANTHENOL\NIACINAMIDE\PYRIDOXINE HYDROCHLORIDE\RIBOFLAVIN 5^-PHOSPHATE SODIUM\THIA
  8. BoneUp [Concomitant]
  9. CholestelRice [Concomitant]
  10. D3K2 [Concomitant]
  11. MINERALS\OMEGA-3 FATTY ACIDS\VITAMINS [Concomitant]
     Active Substance: MINERALS\OMEGA-3 FATTY ACIDS\VITAMINS
  12. Magnesium-Potassium [Concomitant]
  13. Saccharomycn [Concomitant]
  14. FISH OIL [Concomitant]
     Active Substance: FISH OIL
  15. Xymodine [Concomitant]
  16. ZINC [Concomitant]
     Active Substance: ZINC
  17. Glycinate [Concomitant]

REACTIONS (5)
  - Urticaria [None]
  - Tremor [None]
  - Agitation [None]
  - Anxiety [None]
  - Electric shock sensation [None]

NARRATIVE: CASE EVENT DATE: 20240629
